FAERS Safety Report 5553529-7 (Version None)
Quarter: 2007Q4

REPORT INFORMATION
  Report Type: 
  Country: None (occurrence: None)
  Receive Date: 20071211
  Receipt Date: 20071129
  Transmission Date: 20080405
  Serious: Yes (Other)
  Sender: FDA-Public Use
  Company Number: MEDI-0006228

PATIENT
  Age: 13 Month
  Sex: Male
  Weight: 11.1403 kg

DRUGS (2)
  1. SYNAGIS [Suspect]
     Dosage: 15 MG/KG, INTRAMUSCULAR
     Route: 030
     Dates: start: 20071106, end: 20071106
  2. TYLENOL [Concomitant]

REACTIONS (2)
  - CONVULSION [None]
  - SKIN WARM [None]
